FAERS Safety Report 8514603-6 (Version None)
Quarter: 2012Q3

REPORT INFORMATION
  Report Type: 
  Country: None (occurrence: None)
  Receive Date: 20120717
  Receipt Date: 20120711
  Transmission Date: 20120928
  Serious: Yes (Other)
  Sender: FDA-Public Use
  Company Number: DK-PFIZER INC-2012167584

PATIENT
  Age: 59 Year
  Sex: Female

DRUGS (2)
  1. VARENICLINE TARTRATE [Suspect]
     Indication: EX-TOBACCO USER
     Dates: start: 20090112
  2. VARENICLINE TARTRATE [Suspect]
     Indication: SMOKING CESSATION THERAPY

REACTIONS (4)
  - DEPRESSION [None]
  - SUICIDAL IDEATION [None]
  - AGEUSIA [None]
  - ANOSMIA [None]
